FAERS Safety Report 14596158 (Version 1)
Quarter: 2018Q1

REPORT INFORMATION
  Report Type: Spontaneous
  Country: DE (occurrence: DE)
  Receive Date: 20180303
  Receipt Date: 20180303
  Transmission Date: 20180509
  Serious: Yes (Other)
  Sender: FDA-Public Use
  Company Number: DE-AUROBINDO-AUR-APL-2018-010555

PATIENT
  Sex: Female

DRUGS (16)
  1. OXYCODONE [Suspect]
     Active Substance: OXYCODONE
     Indication: PAIN
  2. CRISABOROLE [Concomitant]
     Active Substance: CRISABOROLE
  3. LEVOTHYROXINE. [Concomitant]
     Active Substance: LEVOTHYROXINE
  4. ZETIA [Concomitant]
     Active Substance: EZETIMIBE
  5. BACLOFEN. [Suspect]
     Active Substance: BACLOFEN
     Indication: TREMOR
     Dosage: UNK
     Dates: start: 20040101
  6. SKELAXIN [Suspect]
     Active Substance: METAXALONE
     Dosage: UNK
     Dates: start: 20040101, end: 20150101
  7. LIDOCAINE. [Concomitant]
     Active Substance: LIDOCAINE
  8. AMLODIPINE [Concomitant]
     Active Substance: AMLODIPINE BESYLATE
     Indication: PRODUCT USED FOR UNKNOWN INDICATION
  9. ESZOPICLONE. [Concomitant]
     Active Substance: ESZOPICLONE
  10. HYDROCODONE [Concomitant]
     Active Substance: HYDROCODONE
  11. ROSUVASTATIN CALCIUM. [Concomitant]
     Active Substance: ROSUVASTATIN CALCIUM
  12. HYDROCODONE BITARTRATE AND ACETAMINOPHEN [Concomitant]
     Active Substance: ACETAMINOPHEN\HYDROCODONE BITARTRATE
  13. LAMOTRIGINE TABLET [Suspect]
     Active Substance: LAMOTRIGINE
     Indication: ANXIETY
     Dosage: UNK
     Dates: end: 20170101
  14. GABAPENTIN FILM-COATED TABLET [Suspect]
     Active Substance: GABAPENTIN
     Indication: FIBROMYALGIA
     Dosage: 600 MILLIGRAM
     Dates: start: 20040101
  15. DULOXETINE. [Concomitant]
     Active Substance: DULOXETINE
  16. QUETIAPINE FUMARATE. [Concomitant]
     Active Substance: QUETIAPINE FUMARATE

REACTIONS (8)
  - Ankle fracture [Recovered/Resolved]
  - Foot fracture [Recovered/Resolved]
  - Concussion [Recovered/Resolved]
  - Lower limb fracture [Recovered/Resolved]
  - Tooth disorder [Unknown]
  - Fall [Recovered/Resolved]
  - Herpes zoster [Unknown]
  - Tremor [Unknown]

NARRATIVE: CASE EVENT DATE: 20150619
